FAERS Safety Report 11612341 (Version 3)
Quarter: 2015Q4

REPORT INFORMATION
  Report Type: Spontaneous
  Country: NL (occurrence: NL)
  Receive Date: 20151008
  Receipt Date: 20151028
  Transmission Date: 20160304
  Serious: Yes (Hospitalization)
  Sender: FDA-Public Use
  Company Number: NL-TEVA-598324ISR

PATIENT
  Age: 51 Year
  Sex: Female
  Weight: 100 kg

DRUGS (1)
  1. ARIPIPRAZOL INJVLST 7.5MG/ML [Suspect]
     Active Substance: ARIPIPRAZOLE
     Indication: SCHIZOAFFECTIVE DISORDER
     Dosage: 1 DOSAGE FORMS DAILY; SINGLE ADMINISTRATION
     Route: 030
     Dates: start: 20150108

REACTIONS (3)
  - Circulatory collapse [Recovered/Resolved]
  - Orthostatic hypotension [Recovered/Resolved]
  - Torsade de pointes [Recovered/Resolved]

NARRATIVE: CASE EVENT DATE: 20150108
